FAERS Safety Report 7242713-2 (Version None)
Quarter: 2011Q1

REPORT INFORMATION
  Report Type: 
  Country: None (occurrence: None)
  Receive Date: 20110125
  Receipt Date: 20110120
  Transmission Date: 20110831
  Serious: Yes (Life-Threatening, Hospitalization)
  Sender: FDA-Public Use
  Company Number: US-JNJFOC-20110103957

PATIENT
  Age: 15 Month
  Sex: Female

DRUGS (4)
  1. TRAZADOL [Suspect]
     Indication: ACCIDENTAL DRUG INTAKE BY CHILD
     Route: 048
  2. PHENTERMINE [Suspect]
     Indication: ACCIDENTAL DRUG INTAKE BY CHILD
     Route: 048
  3. NUCYNTA [Suspect]
     Indication: ACCIDENTAL DRUG INTAKE BY CHILD
     Route: 048
  4. AMPHETAMINES [Suspect]
     Indication: ACCIDENTAL DRUG INTAKE BY CHILD
     Route: 048

REACTIONS (4)
  - DYSTONIA [None]
  - ACCIDENTAL DRUG INTAKE BY CHILD [None]
  - MULTIPLE DRUG OVERDOSE ACCIDENTAL [None]
  - HALLUCINATION [None]
